FAERS Safety Report 7145450-8 (Version None)
Quarter: 2010Q4

REPORT INFORMATION
  Report Type: 
  Country: None (occurrence: None)
  Receive Date: 20101208
  Receipt Date: 20101203
  Transmission Date: 20110411
  Serious: Yes (Other)
  Sender: FDA-Public Use
  Company Number: IE-ROCHE-745991

PATIENT
  Sex: Female

DRUGS (1)
  1. BONIVA [Suspect]
     Route: 065

REACTIONS (2)
  - FALL [None]
  - WRIST FRACTURE [None]
